FAERS Safety Report 4913954-1 (Version None)
Quarter: 2006Q1

REPORT INFORMATION
  Report Type: 
  Country: None (occurrence: None)
  Receive Date: 20060216
  Receipt Date: 20060105
  Transmission Date: 20060701
  Serious: Yes (Hospitalization, Disabling)
  Sender: FDA-Public Use
  Company Number: US-MERCK-0601USA00479

PATIENT
  Age: 63 Year
  Sex: Male

DRUGS (7)
  1. VIOXX [Suspect]
     Route: 048
     Dates: start: 20030301
  2. PLAVIX [Concomitant]
     Route: 065
  3. AVAPRO [Concomitant]
     Route: 065
  4. ASPIRIN [Concomitant]
     Route: 065
  5. LIPITOR [Concomitant]
     Route: 065
  6. FOLTX [Concomitant]
     Route: 065
  7. ALLEGRA [Concomitant]
     Route: 065

REACTIONS (5)
  - CAROTID ARTERY DISEASE [None]
  - CAROTID BRUIT [None]
  - CORONARY ARTERY DISEASE [None]
  - INTERMITTENT CLAUDICATION [None]
  - MYOCARDIAL INFARCTION [None]
